FAERS Safety Report 18088839 (Version 1)
Quarter: 2020Q3

REPORT INFORMATION
  Report Type: Spontaneous
  Country: NO (occurrence: NO)
  Receive Date: 20200729
  Receipt Date: 20200729
  Transmission Date: 20201103
  Serious: Yes (Other)
  Sender: FDA-Public Use
  Company Number: NO-BAYER-2020-149948

PATIENT
  Sex: Male

DRUGS (1)
  1. XOFIGO [Suspect]
     Active Substance: RADIUM RA-223 DICHLORIDE

REACTIONS (6)
  - Metastases to bone [None]
  - Weight decreased [None]
  - Metastases to lymph nodes [None]
  - Decreased appetite [None]
  - General physical health deterioration [None]
  - Prostatic specific antigen increased [None]
